FAERS Safety Report 4300762-8 (Version None)
Quarter: 2004Q1

REPORT INFORMATION
  Report Type: 
  Country: None (occurrence: None)
  Receive Date: 20040217
  Receipt Date: 20040206
  Transmission Date: 20041129
  Serious: Yes (Life-Threatening, Hospitalization)
  Sender: FDA-Public Use
  Company Number: 2004SE00578

PATIENT
  Age: 51 Year
  Sex: Female

DRUGS (3)
  1. BLOPRESS [Suspect]
     Indication: HYPERTENSION
     Dosage: 8 MG DAILY PO
     Route: 048
     Dates: start: 20031217, end: 20040129
  2. BOHUTUSYOSAN [Suspect]
     Dosage: 2.5 GR TID PO
     Route: 048
  3. BOUIOUGITOU [Concomitant]

REACTIONS (2)
  - INTERSTITIAL LUNG DISEASE [None]
  - RESPIRATORY FAILURE [None]
